FAERS Safety Report 18832814 (Version 1)
Quarter: 2021Q1

REPORT INFORMATION
  Report Type: Spontaneous
  Country: US (occurrence: US)
  Receive Date: 20210203
  Receipt Date: 20210203
  Transmission Date: 20210419
  Serious: No
  Sender: FDA-Public Use
  Company Number: US-009507513-2101USA012128

PATIENT
  Age: 42 Year
  Sex: Female

DRUGS (3)
  1. GANIRELIX ACETATE INJECTION [Suspect]
     Active Substance: GANIRELIX ACETATE
     Dosage: 1 DOSE (TOTAL 3 DOSES)
     Dates: start: 20210118, end: 20210118
  2. GANIRELIX ACETATE INJECTION [Suspect]
     Active Substance: GANIRELIX ACETATE
     Dosage: 1 DOSE (TOTAL 3 DOSES)
     Dates: start: 20210117, end: 20210117
  3. GANIRELIX ACETATE INJECTION [Suspect]
     Active Substance: GANIRELIX ACETATE
     Dosage: 1 DOSE (TOTAL 3 DOSES)
     Dates: start: 20210119, end: 20210119

REACTIONS (1)
  - Premature ovulation [Unknown]

NARRATIVE: CASE EVENT DATE: 202101
